FAERS Safety Report 8100032-6 (Version None)
Quarter: 2012Q1

REPORT INFORMATION
  Report Type: 
  Country: None (occurrence: None)
  Receive Date: 20120129
  Receipt Date: 20111102
  Transmission Date: 20120608
  Serious: No
  Sender: FDA-Public Use
  Company Number: US-ABBOTT-11P-163-0870802-00

PATIENT
  Age: 51 Year
  Sex: Male

DRUGS (9)
  1. FOLIC ACID [Concomitant]
     Indication: PRODUCT USED FOR UNKNOWN INDICATION
  2. ZANTAC [Concomitant]
     Indication: ABDOMINAL DISCOMFORT
  3. HUMIRA [Suspect]
     Indication: RHEUMATOID ARTHRITIS
     Dosage: INTERRUPTED THERAPY
     Dates: start: 20110725
  4. METHOTREXATE [Concomitant]
     Indication: RHEUMATOID ARTHRITIS
     Dosage: WEEKLY
  5. MELOXICAM [Concomitant]
     Indication: INFLAMMATION
  6. MAGNESIUM HYDROXIDE TAB [Concomitant]
     Indication: ABDOMINAL DISCOMFORT
  7. ONCE A DAY VITAMIN [Concomitant]
     Indication: PRODUCT USED FOR UNKNOWN INDICATION
     Dosage: DAILY
  8. HYDROXYCHLOROQUINE SULFATE [Concomitant]
     Indication: RHEUMATOID ARTHRITIS
     Dates: start: 20070101
  9. MELOXICAM [Concomitant]
     Indication: RHEUMATOID ARTHRITIS
     Dates: start: 20090101

REACTIONS (2)
  - DIARRHOEA [None]
  - FATIGUE [None]
